FAERS Safety Report 5659217-0 (Version None)
Quarter: 2008Q1

REPORT INFORMATION
  Report Type: 
  Country: None (occurrence: None)
  Receive Date: 20080311
  Receipt Date: 20070605
  Transmission Date: 20080703
  Serious: No
  Sender: FDA-Public Use
  Company Number: US-BAYER-200711799BCC

PATIENT
  Age: 87 Year
  Sex: Male
  Weight: 69 kg

DRUGS (3)
  1. ALEVE [Suspect]
     Indication: BACK PAIN
     Dosage: TOTAL DAILY DOSE: 220 MG  UNIT DOSE: 220 MG
     Route: 048
     Dates: start: 20070605
  2. LIPITOR [Concomitant]
  3. METOPROLOL TARTRATE [Concomitant]

REACTIONS (1)
  - BACK PAIN [None]
